FAERS Safety Report 19410070 (Version 3)
Quarter: 2021Q3

REPORT INFORMATION
  Report Type: Spontaneous
  Country: US (occurrence: US)
  Receive Date: 20210614
  Receipt Date: 20210705
  Transmission Date: 20211014
  Serious: Yes (Other)
  Sender: FDA-Public Use
  Company Number: US-JNJFOC-20210604981

PATIENT
  Age: 51 Year
  Sex: Female

DRUGS (1)
  1. AVEENO CLEAR COMPLEXION DAILY CLEANSING [Suspect]
     Active Substance: SALICYLIC ACID
     Indication: REMOVAL OF INERT MATTER FROM SKIN OR SUBCUTANEOUS TISSUE
     Dosage: ONE PADS ONCE
     Route: 061
     Dates: start: 20210528, end: 202105

REACTIONS (3)
  - Application site rash [Recovered/Resolved]
  - Application site burn [Recovered/Resolved]
  - Application site reaction [Recovered/Resolved]

NARRATIVE: CASE EVENT DATE: 20210528
